FAERS Safety Report 4883244-4 (Version None)
Quarter: 2006Q1

REPORT INFORMATION
  Report Type: 
  Country: None (occurrence: None)
  Receive Date: 20060112
  Receipt Date: 20060103
  Transmission Date: 20060701
  Serious: Yes (Death)
  Sender: FDA-Public Use
  Company Number: 13172

PATIENT
  Age: 68 Year
  Sex: Male

DRUGS (4)
  1. METHOTREXATE [Suspect]
     Indication: RHEUMATOID ARTHRITIS
     Dosage: 15 MG PO
     Route: 048
     Dates: start: 20010701
  2. SULFASALAZINE [Concomitant]
  3. HYDROXYCHLOROQUINE SULFATE [Concomitant]
  4. PREDNISOLONE [Concomitant]

REACTIONS (1)
  - LYMPHOMA [None]
